FAERS Safety Report 17950088 (Version 5)
Quarter: 2020Q3

REPORT INFORMATION
  Report Type: Report from Study
  Country: IL (occurrence: IL)
  Receive Date: 20200626
  Receipt Date: 20200917
  Transmission Date: 20201103
  Serious: Yes (Hospitalization)
  Sender: FDA-Public Use
  Company Number: NVSC2020IL167401

PATIENT
  Age: 21 Year
  Sex: Male
  Weight: 70 kg

DRUGS (9)
  1. CRIZANLIZUMAB [Suspect]
     Active Substance: CRIZANLIZUMAB
     Indication: SICKLE CELL DISEASE
     Dosage: 350 MG
     Route: 042
     Dates: start: 20200527
  2. CRIZANLIZUMAB [Suspect]
     Active Substance: CRIZANLIZUMAB
     Dosage: 350 MG
     Route: 042
     Dates: start: 20200610
  3. MOXYPEN [Concomitant]
     Active Substance: AMOXICILLIN
     Indication: PRODUCT USED FOR UNKNOWN INDICATION
     Dosage: UNK
     Route: 065
  4. HYDROXYUREA. [Concomitant]
     Active Substance: HYDROXYUREA
     Indication: PRODUCT USED FOR UNKNOWN INDICATION
     Dosage: UNK
     Route: 065
  5. PRAMINE [Concomitant]
     Active Substance: IMIPRAMINE HYDROCHLORIDE
     Indication: PRODUCT USED FOR UNKNOWN INDICATION
     Dosage: UNK
     Route: 065
  6. FOLIC ACID. [Concomitant]
     Active Substance: FOLIC ACID
     Indication: PRODUCT USED FOR UNKNOWN INDICATION
     Dosage: UNK
     Route: 065
  7. CLINDAMYCIN. [Concomitant]
     Active Substance: CLINDAMYCIN
     Indication: SPLENECTOMY
     Dosage: UNK
     Route: 065
  8. MICROPIRIN [Concomitant]
     Active Substance: ASPIRIN
     Indication: PRODUCT USED FOR UNKNOWN INDICATION
     Dosage: UNK
     Route: 065
  9. CEFTRIAXONE. [Concomitant]
     Active Substance: CEFTRIAXONE
     Indication: SPLENECTOMY
     Dosage: UNK
     Route: 065

REACTIONS (15)
  - Pain [Unknown]
  - Blood lactate dehydrogenase increased [Unknown]
  - Blood pressure increased [Unknown]
  - Sickle cell anaemia with crisis [Unknown]
  - Chest pain [Recovering/Resolving]
  - Abdominal pain [Unknown]
  - Arthralgia [Recovering/Resolving]
  - Pyrexia [Unknown]
  - White blood cell count increased [Unknown]
  - Haemoglobin decreased [Recovered/Resolved]
  - Blood pressure decreased [Unknown]
  - Dyspnoea [Unknown]
  - Gingivitis [Unknown]
  - Haemolysis [Unknown]
  - Back pain [Recovering/Resolving]

NARRATIVE: CASE EVENT DATE: 20200610
